FAERS Safety Report 16712777 (Version 1)
Quarter: 2019Q3

REPORT INFORMATION
  Report Type: Report from Study
  Country: US (occurrence: US)
  Receive Date: 20190817
  Receipt Date: 20190817
  Transmission Date: 20191004
  Serious: Yes (Other)
  Sender: FDA-Public Use
  Company Number: US-TEVA-2019-US-1091968

PATIENT
  Age: 48 Year
  Sex: Female

DRUGS (1)
  1. COPAXONE [Suspect]
     Active Substance: GLATIRAMER ACETATE
     Dates: start: 20190719

REACTIONS (10)
  - Vomiting [Unknown]
  - Dyspnoea [Unknown]
  - Pruritus [Unknown]
  - Lip swelling [Recovered/Resolved]
  - Muscular weakness [Unknown]
  - Eye swelling [Recovered/Resolved]
  - Pruritus [Unknown]
  - Feeling hot [Unknown]
  - Chills [Unknown]
  - Swelling face [Unknown]

NARRATIVE: CASE EVENT DATE: 20190719
